FAERS Safety Report 8564038-5 (Version None)
Quarter: 2012Q3

REPORT INFORMATION
  Report Type: 
  Country: None (occurrence: None)
  Receive Date: 20120803
  Receipt Date: 20120730
  Transmission Date: 20120928
  Serious: Yes (Other)
  Sender: FDA-Public Use
  Company Number: US-MSD-2012SP031321

PATIENT

DRUGS (4)
  1. PEG-INTRON [Suspect]
     Indication: HEPATITIS C
     Dosage: UNK UNK, UNKNOWN
     Route: 065
     Dates: start: 20120504
  2. RIBAVIRIN [Suspect]
     Indication: HEPATITIS C
     Dosage: UNK UNK, UNKNOWN
     Route: 065
     Dates: start: 20120504
  3. VALTREX [Suspect]
     Indication: HERPES ZOSTER
     Dosage: UNK UNK, UNKNOWN
     Route: 065
  4. VICTRELIS [Suspect]
     Indication: HEPATITIS C
     Dosage: UNK UNK, UNKNOWN
     Route: 065
     Dates: start: 20120601

REACTIONS (18)
  - MALAISE [None]
  - INFLUENZA [None]
  - CHILLS [None]
  - VOMITING [None]
  - HERPES ZOSTER [None]
  - DYSGEUSIA [None]
  - FEELING ABNORMAL [None]
  - SCRATCH [None]
  - RASH [None]
  - TONGUE OEDEMA [None]
  - VASCULAR INJURY [None]
  - DIARRHOEA [None]
  - TONGUE DISORDER [None]
  - CONTUSION [None]
  - HYPOAESTHESIA [None]
  - CANDIDIASIS [None]
  - FACE OEDEMA [None]
  - HYPERSENSITIVITY [None]
